FAERS Safety Report 24768107 (Version 1)
Quarter: 2024Q4

REPORT INFORMATION
  Report Type: Spontaneous
  Country: US (occurrence: US)
  Receive Date: 20241223
  Receipt Date: 20241223
  Transmission Date: 20250114
  Serious: Yes (Death, Other)
  Sender: MERCK
  Company Number: US-009507513-2412USA007582

PATIENT
  Age: 72 Year
  Sex: Female

DRUGS (1)
  1. KEYTRUDA [Suspect]
     Active Substance: PEMBROLIZUMAB
     Indication: Adenocarcinoma of colon
     Dosage: UNK

REACTIONS (5)
  - Immune-mediated myasthenia gravis [Fatal]
  - Immune-mediated enterocolitis [Fatal]
  - Immune-mediated hepatitis [Fatal]
  - Immune-mediated myositis [Fatal]
  - Immune-mediated myocarditis [Fatal]
